FAERS Safety Report 9063294 (Version 1)
Quarter: 2013Q1

REPORT INFORMATION
  Report Type: Report from Study
  Country: US (occurrence: US)
  Receive Date: 20130129
  Receipt Date: 20130129
  Transmission Date: 20140127
  Serious: Yes (Hospitalization, Other)
  Sender: FDA-Public Use
  Company Number: US-ABBOTT-12P-163-0951900-00

PATIENT
  Age: 41 Year
  Sex: Female

DRUGS (2)
  1. HUMIRA 40 MG/0.8 ML PEN [Suspect]
     Indication: ANKYLOSING SPONDYLITIS
     Dates: start: 201204, end: 20120529
  2. HUMIRA 40 MG/0.8 ML PEN [Suspect]
     Dates: start: 20120629

REACTIONS (5)
  - Abdominal pain [Recovered/Resolved]
  - Cholelithiasis [Unknown]
  - Nausea [Recovered/Resolved]
  - Gallbladder disorder [Unknown]
  - Abdominal pain [Unknown]
